FAERS Safety Report 13890039 (Version 2)
Quarter: 2017Q4

REPORT INFORMATION
  Report Type: Spontaneous
  Country: GB (occurrence: GB)
  Receive Date: 20170822
  Receipt Date: 20171107
  Transmission Date: 20180320
  Serious: Yes (Death, Life-Threatening)
  Sender: FDA-Public Use
  Company Number: GB-B.I. PHARMACEUTICALS,INC./RIDGEFIELD-2017-16-000068

PATIENT
  Age: 79 Year
  Sex: Male
  Weight: 79 kg

DRUGS (6)
  1. ATORVASTATIN [Concomitant]
     Active Substance: ATORVASTATIN
     Indication: CEREBROVASCULAR ACCIDENT PROPHYLAXIS
     Dosage: UNIT DOSE: 80
     Route: 065
     Dates: start: 20170707
  2. ASPIRIN. [Concomitant]
     Active Substance: ASPIRIN
     Indication: CEREBROVASCULAR ACCIDENT PROPHYLAXIS
     Dosage: UNIT DOSE: 300
     Route: 065
     Dates: start: 20170707, end: 20170716
  3. CALCICHEW [Concomitant]
     Active Substance: CALCIUM CARBONATE
     Indication: PRODUCT USED FOR UNKNOWN INDICATION
     Route: 065
  4. TAZOCIN [Concomitant]
     Active Substance: PIPERACILLIN SODIUM\TAZOBACTAM SODIUM
     Indication: PRODUCT USED FOR UNKNOWN INDICATION
     Dosage: UNIT DOSE: 4.5
     Route: 065
     Dates: start: 20170723, end: 20170723
  5. PRADAXA [Suspect]
     Active Substance: DABIGATRAN ETEXILATE MESYLATE
     Indication: ATRIAL FIBRILLATION
     Route: 048
     Dates: start: 20170717, end: 20170723
  6. ALTEPLASE. [Concomitant]
     Active Substance: ALTEPLASE
     Indication: ISCHAEMIC STROKE
     Dosage: UNIT DOSE:77
     Route: 065
     Dates: start: 20170706

REACTIONS (10)
  - Liver function test abnormal [Unknown]
  - Abdominal pain [Unknown]
  - Anuria [Unknown]
  - Atrial fibrillation [Fatal]
  - Acute kidney injury [Unknown]
  - Intestinal ischaemia [Fatal]
  - Multiple organ dysfunction syndrome [Fatal]
  - Diarrhoea haemorrhagic [Recovered/Resolved with Sequelae]
  - Gastrointestinal haemorrhage [Recovered/Resolved with Sequelae]
  - Coagulopathy [Recovered/Resolved with Sequelae]

NARRATIVE: CASE EVENT DATE: 20170723
